FAERS Safety Report 16235726 (Version 2)
Quarter: 2019Q2

REPORT INFORMATION
  Report Type: Report from Study
  Country: KR (occurrence: KR)
  Receive Date: 20190424
  Receipt Date: 20190503
  Transmission Date: 20190711
  Serious: Yes (Death, Hospitalization, Other)
  Sender: FDA-Public Use
  Company Number: KR-INCYTE CORPORATION-2019IN003698

PATIENT
  Age: 69 Year
  Sex: Female
  Weight: 65 kg

DRUGS (5)
  1. JAKAVI [Suspect]
     Active Substance: RUXOLITINIB
     Indication: MYELOFIBROSIS
     Dosage: 20 MG, BID
     Route: 048
     Dates: start: 20181010, end: 20190327
  2. ASPIRIN. [Concomitant]
     Active Substance: ASPIRIN
     Indication: POLYCYTHAEMIA VERA
     Dosage: 100 MG/ DAY
     Route: 048
     Dates: start: 20170803, end: 20190328
  3. DICAMAX [Concomitant]
     Indication: OSTEOPOROSIS
     Dosage: 1000 MG/DAY
     Route: 048
     Dates: start: 2016, end: 20190326
  4. SEVIKAR [Concomitant]
     Active Substance: AMLODIPINE BESYLATE\OLMESARTAN MEDOXOMIL
     Indication: HYPERTENSION
     Dosage: 1 DF, UNK
     Route: 065
     Dates: start: 20180208, end: 20190328
  5. CICIBON [Concomitant]
     Indication: OSTEOPOROSIS
     Dosage: 1000 MG/DAY
     Route: 048
     Dates: start: 20190327, end: 20190328

REACTIONS (16)
  - Gamma-glutamyltransferase increased [Unknown]
  - Blister [Fatal]
  - Thrombocytopenia [Not Recovered/Not Resolved]
  - Blood creatinine increased [Not Recovered/Not Resolved]
  - Herpes zoster disseminated [Fatal]
  - Rash [Fatal]
  - Alanine aminotransferase increased [Not Recovered/Not Resolved]
  - Myocardial infarction [Fatal]
  - Acute hepatic failure [Not Recovered/Not Resolved]
  - Hepatitis A antibody positive [Unknown]
  - Mental status changes [Unknown]
  - Pyrexia [Unknown]
  - Somnolence [Not Recovered/Not Resolved]
  - Multiple organ dysfunction syndrome [Not Recovered/Not Resolved]
  - Fatigue [Unknown]
  - Aspartate aminotransferase increased [Not Recovered/Not Resolved]

NARRATIVE: CASE EVENT DATE: 20190327
